FAERS Safety Report 26191043 (Version 1)
Quarter: 2025Q4

REPORT INFORMATION
  Report Type: Spontaneous
  Country: GB (occurrence: GB)
  Receive Date: 20251223
  Receipt Date: 20251223
  Transmission Date: 20260118
  Serious: Yes (Disabling, Other)
  Sender: RANBAXY
  Company Number: GB-MHRA-MED-202512111042315220-JZYWD

PATIENT
  Age: 52 Year
  Sex: Female

DRUGS (2)
  1. CIPROFLOXACIN [Suspect]
     Active Substance: CIPROFLOXACIN
     Indication: Mastoiditis
     Dosage: UNK
     Route: 065
  2. DEXAMETHASONE [Suspect]
     Active Substance: DEXAMETHASONE
     Indication: Mastoiditis
     Dosage: UNK
     Route: 065
     Dates: start: 20251101

REACTIONS (8)
  - Pain in extremity [Not Recovered/Not Resolved]
  - Muscle spasms [Not Recovered/Not Resolved]
  - Arthralgia [Not Recovered/Not Resolved]
  - Paraesthesia [Not Recovered/Not Resolved]
  - Tendon pain [Not Recovered/Not Resolved]
  - Dizziness [Not Recovered/Not Resolved]
  - Computerised tomogram ear [Recovering/Resolving]
  - Myalgia [Not Recovered/Not Resolved]

NARRATIVE: CASE EVENT DATE: 20251101
